FAERS Safety Report 8905552 (Version 1)
Quarter: 2012Q4

REPORT INFORMATION
  Report Type: 
  Country: FR (occurrence: FR)
  Receive Date: 20121113
  Receipt Date: 20121113
  Transmission Date: 20130627
  Serious: Yes (Other)
  Sender: FDA-Public Use
  Company Number: FR-WATSON-2012-19425

PATIENT
  Age: 58 Year
  Sex: Male

DRUGS (3)
  1. ZONISAMIDE [Suspect]
     Indication: EPILEPSY
     Dosage: UNK, unknown
     Route: 065
  2. VALPROATE [Concomitant]
     Indication: EPILEPSY
     Dosage: UNK, unknown
     Route: 065
  3. LAMOTRIGINE [Concomitant]
     Indication: EPILEPSY
     Dosage: UNK, unknown
     Route: 065

REACTIONS (1)
  - Eosinophilic colitis [Recovered/Resolved]
